FAERS Safety Report 24034614 (Version 1)
Quarter: 2024Q3

REPORT INFORMATION
  Report Type: Report from Study
  Country: AR (occurrence: AR)
  Receive Date: 20240701
  Receipt Date: 20240701
  Transmission Date: 20241016
  Serious: No
  Sender: ROCHE
  Company Number: AR-ROCHE-3572028

PATIENT
  Age: 25 Year
  Sex: Female
  Weight: 65.0 kg

DRUGS (4)
  1. RISDIPLAM [Suspect]
     Active Substance: RISDIPLAM
     Indication: Spinal muscular atrophy
     Dosage: MORNING INTAKES
     Route: 065
     Dates: start: 20240510
  2. RISDIPLAM [Suspect]
     Active Substance: RISDIPLAM
     Dosage: THE TIME OF TAKING USUAL TIME REMAINED AT NIGHT (10 P.M.)
     Route: 065
  3. MESTINON [Concomitant]
     Active Substance: PYRIDOSTIGMINE BROMIDE
     Route: 047
  4. PHENYLEPHRINE HYDROCHLORIDE\PREDNISOLONE ACETATE [Concomitant]
     Active Substance: PHENYLEPHRINE HYDROCHLORIDE\PREDNISOLONE ACETATE
     Indication: Cataract

REACTIONS (1)
  - Nausea [Recovered/Resolved]

NARRATIVE: CASE EVENT DATE: 20240510
